FAERS Safety Report 5085017-9 (Version None)
Quarter: 2006Q3

REPORT INFORMATION
  Report Type: 
  Country: None (occurrence: None)
  Receive Date: 20060815
  Receipt Date: 20060727
  Transmission Date: 20061208
  Serious: Yes (Hospitalization)
  Sender: FDA-Public Use
  Company Number: US200607000328

PATIENT
  Age: 29 Year
  Sex: Male
  Weight: 95.2 kg

DRUGS (6)
  1. SOMATROPIN [Suspect]
     Indication: HYPOPITUITARISM
     Dosage: 0.8 MG, DAILY (1/D), SUBCUTANEOUS
     Route: 058
     Dates: start: 20010801
  2. HYDROCORTISONE [Concomitant]
  3. LEVOTHYROXINE SODIUM [Concomitant]
  4. ANDROGEL [Concomitant]
  5. DOSTINEX [Concomitant]
  6. LEVOXYL [Concomitant]

REACTIONS (5)
  - BLOOD CALCIUM INCREASED [None]
  - CARCINOID TUMOUR PULMONARY [None]
  - CONSTIPATION [None]
  - INSULIN-LIKE GROWTH FACTOR INCREASED [None]
  - SERUM SEROTONIN INCREASED [None]
